FAERS Safety Report 8548421-X (Version None)
Quarter: 2012Q3

REPORT INFORMATION
  Report Type: 
  Country: None (occurrence: None)
  Receive Date: 20120730
  Receipt Date: 20120702
  Transmission Date: 20120928
  Serious: No
  Sender: FDA-Public Use
  Company Number: US-009507513-1207USA000258

PATIENT

DRUGS (1)
  1. IMPLANON [Suspect]
     Indication: CONTRACEPTION
     Dosage: UNK
     Route: 059
     Dates: start: 20120101

REACTIONS (3)
  - MEDICAL DEVICE COMPLICATION [None]
  - COMPLICATION OF DEVICE REMOVAL [None]
  - WEIGHT INCREASED [None]
